FAERS Safety Report 8967463 (Version 1)
Quarter: 2012Q4

REPORT INFORMATION
  Report Type: 
  Country: US (occurrence: US)
  Receive Date: 20121217
  Receipt Date: 20121217
  Transmission Date: 20130627
  Serious: No
  Sender: FDA-Public Use
  Company Number: US-BIOGENIDEC-2012BI059078

PATIENT
  Sex: Male

DRUGS (2)
  1. TYSABRI [Suspect]
     Indication: MULTIPLE SCLEROSIS
     Route: 042
     Dates: start: 20120112
  2. AVONEX [Concomitant]
     Indication: MULTIPLE SCLEROSIS
     Route: 030
     Dates: start: 20110302

REACTIONS (24)
  - Fear [Unknown]
  - Memory impairment [Unknown]
  - Nervousness [Unknown]
  - Mobility decreased [Unknown]
  - Burning sensation [Unknown]
  - Irritability [Unknown]
  - Tremor [Unknown]
  - Nervous system disorder [Unknown]
  - Cold sweat [Unknown]
  - Hypersomnia [Unknown]
  - Drug intolerance [Unknown]
  - Stress [Unknown]
  - Conversion disorder [Unknown]
  - Gait disturbance [Unknown]
  - Temperature intolerance [Unknown]
  - Arthritis [Unknown]
  - Back disorder [Unknown]
  - Energy increased [Unknown]
  - Pyrexia [Unknown]
  - Fatigue [Unknown]
  - Asthenia [Unknown]
  - Decreased activity [Unknown]
  - Drug ineffective [Unknown]
  - Multiple sclerosis [Unknown]
